FAERS Safety Report 11155734 (Version 1)
Quarter: 2015Q2

REPORT INFORMATION
  Report Type: Other
  Country: GB (occurrence: GB)
  Receive Date: 20150602
  Receipt Date: 20150602
  Transmission Date: 20150821
  Serious: Yes (Other)
  Sender: FDA-Public Use
  Company Number: GB-MYLANLABS-2015M1016829

PATIENT

DRUGS (6)
  1. OMEPRAZOLE. [Concomitant]
     Active Substance: OMEPRAZOLE
     Dosage: 1 DF, QD (ONGOING)
  2. WARFARIN [Concomitant]
     Active Substance: WARFARIN
     Dosage: ONGOING
  3. DIOTROXIN [Concomitant]
     Indication: HYPOTHYROIDISM
     Dosage: 125 MG, UNK (ONGOING)
  4. FULTIUM-D3 [Concomitant]
     Dosage: 1 DF, QD (ONGOING)
  5. FOLIC ACID. [Concomitant]
     Active Substance: FOLIC ACID
     Dosage: 5 MG, UNK (ONGOING)
  6. AZATHIOPRINE. [Suspect]
     Active Substance: AZATHIOPRINE
     Dosage: UNK
     Dates: start: 20150214

REACTIONS (3)
  - Liver disorder [Not Recovered/Not Resolved]
  - Skin cancer [Not Recovered/Not Resolved]
  - Faecal incontinence [Not Recovered/Not Resolved]

NARRATIVE: CASE EVENT DATE: 201502
